FAERS Safety Report 11915642 (Version 1)
Quarter: 2016Q1

REPORT INFORMATION
  Report Type: Spontaneous
  Country: US (occurrence: None)
  Receive Date: 20160113
  Receipt Date: 20160113
  Transmission Date: 20160526
  Serious: No
  Sender: FDA-Public Use
  Company Number: None

PATIENT
  Age: 58 Year
  Sex: Female

DRUGS (1)
  1. HUMIRA [Suspect]
     Active Substance: ADALIMUMAB
     Indication: PSORIASIS
     Dosage: 40MG  EVERY TWO WEEKS  SUBCUTANEOUS
     Route: 058
     Dates: start: 201506, end: 20160107

REACTIONS (2)
  - Increased tendency to bruise [None]
  - Contusion [None]

NARRATIVE: CASE EVENT DATE: 20160108
